FAERS Safety Report 11615052 (Version 1)
Quarter: 2015Q4

REPORT INFORMATION
  Report Type: Spontaneous
  Country: US (occurrence: None)
  Receive Date: 20151008
  Receipt Date: 20151008
  Transmission Date: 20160304
  Serious: No
  Sender: FDA-Public Use
  Company Number: None

PATIENT
  Age: 59 Year
  Sex: Female

DRUGS (2)
  1. LETROZOL 2.5 MG BRECKINRIDGE PHARMACUTICAL [Suspect]
     Active Substance: LETROZOLE
     Indication: BREAST CANCER RECURRENT
     Dosage: TAKEN BY MOUTH
     Dates: start: 20151002, end: 20151007
  2. DAILY MULTIVITAMIN - NATURES WAY ALIVE [Concomitant]

REACTIONS (5)
  - Photophobia [None]
  - Pupillary light reflex tests abnormal [None]
  - Eye pain [None]
  - Muscle spasms [None]
  - Impaired driving ability [None]

NARRATIVE: CASE EVENT DATE: 20151004
